FAERS Safety Report 24041914 (Version 1)
Quarter: 2024Q3

REPORT INFORMATION
  Report Type: Spontaneous
  Country: US (occurrence: US)
  Receive Date: 20240702
  Receipt Date: 20240702
  Transmission Date: 20241017
  Serious: Yes (Life-Threatening, Other)
  Sender: BAYER
  Company Number: US-BAYER-2024A091273

PATIENT
  Sex: Male

DRUGS (1)
  1. TINACTIN [Suspect]
     Active Substance: TOLNAFTATE

REACTIONS (1)
  - Mesothelioma [None]
